FAERS Safety Report 11828137 (Version 6)
Quarter: 2016Q1

REPORT INFORMATION
  Report Type: Spontaneous
  Country: US (occurrence: US)
  Receive Date: 20151211
  Receipt Date: 20160208
  Transmission Date: 20160525
  Serious: No
  Sender: FDA-Public Use
  Company Number: US-PFIZER INC-2015431447

PATIENT
  Age: 30 Year
  Sex: Male
  Weight: 113 kg

DRUGS (6)
  1. KLONOPIN [Interacting]
     Active Substance: CLONAZEPAM
     Indication: ANXIETY
     Dosage: 1 MG, AS NEEDED
     Dates: start: 2003
  2. PARNATE [Concomitant]
     Active Substance: TRANYLCYPROMINE SULFATE
     Indication: DEPRESSION
     Dosage: 40 MG, 2X/DAY
     Dates: start: 2003
  3. NEURONTIN [Interacting]
     Active Substance: GABAPENTIN
     Indication: ANXIETY
     Dosage: 800 MG, 2X/DAY
     Dates: start: 2008
  4. PARNATE [Concomitant]
     Active Substance: TRANYLCYPROMINE SULFATE
     Dosage: UNK
     Dates: start: 2005
  5. NEURONTIN [Suspect]
     Active Substance: GABAPENTIN
     Indication: MENTAL DISORDER
     Dosage: UNK
     Dates: start: 2002
  6. KLONOPIN [Interacting]
     Active Substance: CLONAZEPAM
     Dosage: 1 MG, 3X/DAY
     Dates: start: 2009

REACTIONS (5)
  - Feeling abnormal [Recovered/Resolved]
  - Drug effect increased [Not Recovered/Not Resolved]
  - Drug ineffective [Unknown]
  - Drug interaction [Not Recovered/Not Resolved]
  - Drug effect incomplete [Not Recovered/Not Resolved]

NARRATIVE: CASE EVENT DATE: 2008
